FAERS Safety Report 16355236 (Version 4)
Quarter: 2019Q3

REPORT INFORMATION
  Report Type: Report from Study
  Country: None (occurrence: US)
  Receive Date: 20190525
  Receipt Date: 20190708
  Transmission Date: 20191004
  Serious: Yes (Other)
  Sender: FDA-Public Use
  Company Number: US-ABBVIE-19S-163-2794551-00

PATIENT
  Age: 66 Year
  Sex: Male
  Weight: 97.61 kg

DRUGS (5)
  1. SILDENAFIL. [Concomitant]
     Active Substance: SILDENAFIL
     Indication: PRODUCT USED FOR UNKNOWN INDICATION
  2. BENTYL [Concomitant]
     Active Substance: DICYCLOMINE HYDROCHLORIDE
     Indication: PRODUCT USED FOR UNKNOWN INDICATION
  3. ANDROGEL [Suspect]
     Active Substance: TESTOSTERONE
     Indication: HYPOGONADISM
     Dosage: ANDROGEL PUMP
     Route: 061
     Dates: start: 20130823
  4. LOMOTIL [Concomitant]
     Active Substance: ATROPINE SULFATE\DIPHENOXYLATE HYDROCHLORIDE
     Indication: PRODUCT USED FOR UNKNOWN INDICATION
  5. CREON [Concomitant]
     Active Substance: PANCRELIPASE AMYLASE\PANCRELIPASE LIPASE\PANCRELIPASE PROTEASE
     Indication: PRODUCT USED FOR UNKNOWN INDICATION

REACTIONS (31)
  - Dysphagia [Unknown]
  - Constipation [Unknown]
  - Impaired gastric emptying [Unknown]
  - Urinary tract infection [Unknown]
  - Abdominal pain [Unknown]
  - Nausea [Unknown]
  - Hypercholesterolaemia [Unknown]
  - Hyperuricaemia [Unknown]
  - Vomiting [Unknown]
  - Depression [Unknown]
  - Ankylosing spondylitis [Not Recovered/Not Resolved]
  - Essential hypertension [Unknown]
  - Gastrooesophageal reflux disease [Unknown]
  - Pancreatic disorder [Unknown]
  - Renal failure [Unknown]
  - Parkinson^s disease [Unknown]
  - Cardiac valve disease [Unknown]
  - Abdominal distension [Unknown]
  - Pain [Unknown]
  - Vertigo [Unknown]
  - Anaemia [Unknown]
  - Haemorrhoids [Unknown]
  - Confusional state [Unknown]
  - Tremor [Unknown]
  - Asthma [Unknown]
  - Osteoporosis [Unknown]
  - Large intestine polyp [Unknown]
  - Chronic kidney disease [Unknown]
  - Amnesia [Unknown]
  - Drug abuse [Unknown]
  - Dyspnoea [Unknown]

NARRATIVE: CASE EVENT DATE: 20130823
